FAERS Safety Report 4837628-0 (Version None)
Quarter: 2005Q4

REPORT INFORMATION
  Report Type: 
  Country: None (occurrence: None)
  Receive Date: 20051128
  Receipt Date: 20051114
  Transmission Date: 20060501
  Serious: Yes (Hospitalization)
  Sender: FDA-Public Use
  Company Number: 2005PK02177

PATIENT
  Age: 72 Year
  Sex: Female

DRUGS (17)
  1. SEROQUEL [Suspect]
     Route: 048
     Dates: start: 20050417, end: 20050517
  2. SEROQUEL [Suspect]
     Route: 048
     Dates: start: 20050518, end: 20050526
  3. SEROQUEL [Suspect]
     Route: 048
     Dates: start: 20050527, end: 20050531
  4. SEROQUEL [Suspect]
     Route: 048
     Dates: start: 20050601, end: 20050607
  5. SEROQUEL [Suspect]
     Route: 048
     Dates: start: 20050608, end: 20050610
  6. MIRTAZAPINE [Suspect]
     Route: 048
     Dates: start: 20050511, end: 20050605
  7. MIRTAZAPINE [Suspect]
     Route: 048
     Dates: start: 20050606
  8. CYMBALTA [Suspect]
     Route: 048
     Dates: start: 20050511, end: 20050523
  9. CYMBALTA [Suspect]
     Route: 048
     Dates: start: 20050524
  10. LAMICTAL [Suspect]
     Dosage: DOSAGE INCREASED
     Route: 048
     Dates: start: 20050606
  11. ZOP [Concomitant]
     Route: 048
     Dates: start: 20050511, end: 20050605
  12. ZOP [Concomitant]
     Route: 048
     Dates: start: 20050606, end: 20050612
  13. MESTINON [Concomitant]
     Dosage: FOR WEEKS
     Route: 048
  14. DIGIMERCK [Concomitant]
     Dosage: FOR YEARS
     Route: 048
  15. ATACAND [Concomitant]
     Dosage: FOR YEARS
     Route: 048
  16. PREDNISOLONE [Concomitant]
     Dosage: FOR WEEKS
     Route: 048
  17. IDEOS [Concomitant]
     Dosage: FOR MONTHS
     Route: 048

REACTIONS (2)
  - DRUG INTERACTION [None]
  - HEPATIC ENZYME INCREASED [None]
